FAERS Safety Report 9592923 (Version 2)
Quarter: 2013Q4

REPORT INFORMATION
  Report Type: Spontaneous
  Country: DE (occurrence: None)
  Receive Date: 20131002
  Receipt Date: 20131010
  Transmission Date: 20140711
  Serious: Yes (Other)
  Sender: FDA-Public Use
  Company Number: 1309-1209

PATIENT
  Age: 91 Year
  Sex: Male

DRUGS (1)
  1. EYLEA (AFLIBERCEPT) (INJECTION) (AFLIBERCEPT) [Suspect]
     Indication: AGE-RELATED MACULAR DEGENERATION
     Route: 031
     Dates: start: 20130123

REACTIONS (6)
  - Vision blurred [None]
  - Vitreous floaters [None]
  - Retinal detachment [None]
  - Retinal tear [None]
  - Vitreous adhesions [None]
  - Vitreous detachment [None]
